FAERS Safety Report 7034641-2 (Version None)
Quarter: 2010Q4

REPORT INFORMATION
  Report Type: 
  Country: None (occurrence: None)
  Receive Date: 20101008
  Receipt Date: 20100927
  Transmission Date: 20110411
  Serious: Yes (Hospitalization)
  Sender: FDA-Public Use
  Company Number: FR-JNJFOC-20100908411

PATIENT
  Age: 71 Year
  Sex: Male

DRUGS (8)
  1. REMICADE [Suspect]
     Indication: ANKYLOSING SPONDYLITIS
     Route: 042
  2. REMICADE [Suspect]
     Route: 042
  3. REMICADE [Suspect]
     Route: 042
  4. REMICADE [Suspect]
     Route: 042
  5. REMICADE [Suspect]
     Route: 042
  6. ACETAMINOPHEN W/ PROPOXYPHENE HCL [Concomitant]
  7. ATARAX [Concomitant]
  8. DILTIAZEM HCL [Concomitant]

REACTIONS (1)
  - TUBERCULOSIS [None]
